FAERS Safety Report 10961271 (Version 1)
Quarter: 2015Q1

REPORT INFORMATION
  Report Type: Spontaneous
  Country: CA (occurrence: None)
  Receive Date: 20150325
  Receipt Date: 20150325
  Transmission Date: 20150721
  Serious: Yes (Other)
  Sender: FDA-Public Use
  Company Number: 2790974

PATIENT
  Age: 71 Year
  Sex: Female

DRUGS (14)
  1. CALCIUM CARBONATE. [Concomitant]
     Active Substance: CALCIUM CARBONATE
  2. REPLAVITE [Concomitant]
  3. VALTREX [Concomitant]
     Active Substance: VALACYCLOVIR HYDROCHLORIDE
  4. MOXIFLOXACIN [Suspect]
     Active Substance: MOXIFLOXACIN
     Indication: MYCOBACTERIAL PERITONITIS
     Dosage: 400 MG MILLIGRAM(S), 1 DAY, UNKNOWN
  5. TIGECYCLINE [Suspect]
     Active Substance: TIGECYCLINE
     Indication: MYCOBACTERIAL PERITONITIS
     Dosage: 100 MG MILLIGRAM(S), 1 DAY, UNKNOWN
  6. CEFOXITIN SODIUM [Suspect]
     Active Substance: CEFOXITIN SODIUM
     Indication: MYCOBACTERIAL PERITONITIS
     Dosage: 2 G GRAM(S), 1 DAY, UNKNOWN
  7. LINEZOLID. [Suspect]
     Active Substance: LINEZOLID
     Indication: MYCOBACTERIAL PERITONITIS
     Dosage: 600 MG MILLIGRAM(S), 2 DAY, UNKNOWN
  8. REVLIMID [Suspect]
     Active Substance: LENALIDOMIDE
     Indication: PLASMA CELL MYELOMA
     Dosage: 10 MG MILLIGRAM(S), 3 WEEK, ORAL
     Route: 048
  9. PANTOPRAZOLE [Concomitant]
     Active Substance: PANTOPRAZOLE SODIUM
  10. ARANESP [Concomitant]
     Active Substance: DARBEPOETIN ALFA
  11. AZITHROMYCIN [Suspect]
     Active Substance: AZITHROMYCIN ANHYDROUS
     Indication: MYCOBACTERIAL PERITONITIS
     Dosage: 250 MG MILLIGRAM(S), 1 DAY, UNKNOWN
  12. ASA [Concomitant]
     Active Substance: ASPIRIN
  13. FUROSEMIDE. [Concomitant]
     Active Substance: FUROSEMIDE
  14. ALFACALCIDOL [Concomitant]
     Active Substance: ALFACALCIDOL

REACTIONS (4)
  - Rash [None]
  - Rash maculo-papular [None]
  - Pericarditis [None]
  - Mycobacterial peritonitis [None]
